FAERS Safety Report 6437486-7 (Version None)
Quarter: 2009Q4

REPORT INFORMATION
  Report Type: 
  Country: None (occurrence: None)
  Receive Date: 20091112
  Receipt Date: 20091103
  Transmission Date: 20100525
  Serious: Yes (Other)
  Sender: FDA-Public Use
  Company Number: IT-ABBOTT-09P-083-0605030-00

PATIENT
  Sex: Female

DRUGS (4)
  1. KLACID I.V. [Suspect]
     Indication: DRUG USE FOR UNKNOWN INDICATION
     Dosage: TOTAL DAILY DOSE 500MG
     Route: 042
     Dates: start: 20090714, end: 20090721
  2. TAZOCIN [Suspect]
     Indication: DRUG USE FOR UNKNOWN INDICATION
     Dosage: TOTAL DAILY DOSE 4 GRAMS
     Route: 042
     Dates: start: 20090708, end: 20090714
  3. TIENAM [Suspect]
     Indication: DRUG USE FOR UNKNOWN INDICATION
     Dosage: TOTAL DAILY DOSE 2 GRAMS
     Route: 042
     Dates: start: 20090714, end: 20090720
  4. CIPROXIN [Suspect]
     Indication: DRUG USE FOR UNKNOWN INDICATION
     Dosage: TOTAL DAILY DOSE 200 MG
     Route: 042
     Dates: start: 20090701, end: 20090709

REACTIONS (1)
  - GASTROENTERITIS CLOSTRIDIAL [None]
